FAERS Safety Report 6871666-1 (Version None)
Quarter: 2010Q3

REPORT INFORMATION
  Report Type: 
  Country: None (occurrence: None)
  Receive Date: 20100723
  Receipt Date: 20100714
  Transmission Date: 20110219
  Serious: Yes (Death, Hospitalization)
  Sender: FDA-Public Use
  Company Number: GXKR2010GB07797

PATIENT
  Age: 75 Year
  Sex: Male

DRUGS (5)
  1. DOXORUBICIN (NGX) [Suspect]
     Indication: B-CELL LYMPHOMA
     Dosage: 1 /3 WEEKS
     Route: 065
  2. PREDNISOLONE (NGX) [Suspect]
     Indication: B-CELL LYMPHOMA
     Dosage: 1 / WEEKS
     Route: 065
  3. VINCRISTINE (NGX) [Suspect]
     Indication: B-CELL LYMPHOMA
     Dosage: 1/ 3 WEEKS
     Route: 065
  4. RITUXIMAB [Suspect]
     Indication: B-CELL LYMPHOMA
     Dosage: 1 / 3WEEKS
     Route: 065
  5. CYCLOPHOSPHAMIDE [Suspect]
     Indication: B-CELL LYMPHOMA
     Dosage: 1 / 3WEEKS
     Route: 065

REACTIONS (16)
  - AFFECT LABILITY [None]
  - AGITATION [None]
  - CARDIOVASCULAR DISORDER [None]
  - CONFUSIONAL STATE [None]
  - DISINHIBITION [None]
  - ENCEPHALITIS ENTEROVIRAL [None]
  - GASTROENTERITIS [None]
  - HYPOGAMMAGLOBULINAEMIA [None]
  - HYPOGLYCAEMIA [None]
  - HYPOKALAEMIA [None]
  - HYPOMAGNESAEMIA [None]
  - IMMUNOSUPPRESSION [None]
  - PNEUMONIA PRIMARY ATYPICAL [None]
  - PULMONARY EMBOLISM [None]
  - SEPSIS [None]
  - SOMNOLENCE [None]
